FAERS Safety Report 21148254 (Version 1)
Quarter: 2022Q3

REPORT INFORMATION
  Report Type: Spontaneous
  Country: JP (occurrence: JP)
  Receive Date: 20220729
  Receipt Date: 20220729
  Transmission Date: 20221026
  Serious: Yes (Other)
  Sender: FDA-Public Use
  Company Number: JP-BAXTER-2022BAX014912

PATIENT
  Age: 74 Year
  Sex: Female

DRUGS (6)
  1. DOXORUBICIN [Suspect]
     Active Substance: DOXORUBICIN
     Indication: Ovarian cancer
     Dosage: WEEK 1- DOSE UNKNOWN, INJECTION, INTRAVENOUS (NOT OTHERWISE SPECIFIED)
     Route: 042
  2. DOXORUBICIN [Suspect]
     Active Substance: DOXORUBICIN
     Dosage: WEEK 5- DOSE UNKNOWN, INJECTION, INTRAVENOUS (NOT OTHERWISE SPECIFIED)
     Route: 042
  3. DOXORUBICIN [Suspect]
     Active Substance: DOXORUBICIN
     Dosage: WEEK 9- DOSE UNKNOWN, INJECTION, INTRAVENOUS (NOT OTHERWISE SPECIFIED)
     Route: 042
  4. DOXORUBICIN [Suspect]
     Active Substance: DOXORUBICIN
     Dosage: WEEK 13- DOSE UNKNOWN, INJECTION, INTRAVENOUS (NOT OTHERWISE SPECIFIED)
     Route: 042
  5. CARBOPLATIN [Concomitant]
     Active Substance: CARBOPLATIN
     Indication: Ovarian cancer
     Dosage: DOSE UNKNOWN
     Route: 065
  6. OLAPARIB [Concomitant]
     Active Substance: OLAPARIB
     Indication: Ovarian cancer
     Dosage: DOSE UNKNOWN
     Route: 065

REACTIONS (4)
  - Skin disorder [Unknown]
  - Nail disorder [Unknown]
  - Neuropathy peripheral [Unknown]
  - Pyrexia [Unknown]
